FAERS Safety Report 8788829 (Version 1)
Quarter: 2012Q4

REPORT INFORMATION
  Report Type: 
  Country: US (occurrence: US)
  Receive Date: 20120916
  Receipt Date: 20120916
  Transmission Date: 20130627
  Serious: No
  Sender: FDA-Public Use
  Company Number: US-009507513-1208USA001174

PATIENT

DRUGS (3)
  1. VICTRELIS [Suspect]
     Indication: HEPATITIS C
     Dosage: 4 capsules three times a day
     Route: 048
     Dates: start: 20120521
  2. PEGINTRON [Suspect]
     Dosage: UNK
     Dates: start: 20120416
  3. RIBAPAK [Concomitant]

REACTIONS (1)
  - Treatment failure [Unknown]
